FAERS Safety Report 5652480-1 (Version None)
Quarter: 2008Q1

REPORT INFORMATION
  Report Type: 
  Country: None (occurrence: None)
  Receive Date: 20080306
  Receipt Date: 20080226
  Transmission Date: 20080703
  Serious: Yes (Life-Threatening, Hospitalization)
  Sender: FDA-Public Use
  Company Number: DE-BAYER-200813915GPV

PATIENT
  Age: 90 Year
  Sex: Female

DRUGS (2)
  1. AVELOX [Suspect]
     Indication: PNEUMONIA
     Dosage: TOTAL DAILY DOSE: 400 MG  UNIT DOSE: 400 MG
     Route: 048
     Dates: start: 20071024, end: 20071028
  2. ARCOXIA [Suspect]
     Indication: PROCEDURAL PAIN
     Dosage: UNIT DOSE: 90 MG
     Route: 048
     Dates: start: 20071025, end: 20071114

REACTIONS (1)
  - HEPATITIS TOXIC [None]
